FAERS Safety Report 23175031 (Version 2)
Quarter: 2023Q4

REPORT INFORMATION
  Report Type: Spontaneous
  Country: US (occurrence: US)
  Receive Date: 20231112
  Receipt Date: 20231121
  Transmission Date: 20240109
  Serious: No
  Sender: FDA-Public Use
  Company Number: US-BoehringerIngelheim-2023-BI-272253

PATIENT
  Sex: Male

DRUGS (4)
  1. JARDIANCE [Suspect]
     Active Substance: EMPAGLIFLOZIN
     Indication: Diabetes mellitus
     Dosage: 10 MG ONCE A DAY
     Dates: start: 2022, end: 20231106
  2. HCTZ lisinopril [Concomitant]
     Indication: Product used for unknown indication
     Dosage: 20 MG/12.5 MG ONCE A DAY
  3. ATENOLOL [Concomitant]
     Active Substance: ATENOLOL
     Indication: Product used for unknown indication
     Dosage: 100 MG ONCE A DAY
  4. VITAMIN D3 [Concomitant]
     Active Substance: CHOLECALCIFEROL
     Indication: Product used for unknown indication
     Dosage: 2000 IUS ONCE A DAY

REACTIONS (4)
  - Rash [Recovering/Resolving]
  - Drug ineffective [Unknown]
  - Pruritus [Recovering/Resolving]
  - Renal disorder [Unknown]
